FAERS Safety Report 17192183 (Version 1)
Quarter: 2019Q4

REPORT INFORMATION
  Report Type: Report from Study
  Country: BE (occurrence: BE)
  Receive Date: 20191223
  Receipt Date: 20191223
  Transmission Date: 20200122
  Serious: Yes (Other)
  Sender: FDA-Public Use
  Company Number: BE-PFIZER INC-2019545400

PATIENT
  Age: 83 Year
  Sex: Female
  Weight: 52.4 kg

DRUGS (11)
  1. BISOPROLOL FUMARATE. [Concomitant]
     Active Substance: BISOPROLOL FUMARATE
     Dosage: 5 MG, UNK
  2. LITICAN [ALIZAPRIDE HYDROCHLORIDE] [Concomitant]
     Indication: INFUSION RELATED REACTION
     Dosage: 50 MG, UNK
     Dates: start: 20170524, end: 20170525
  3. EPREX [Concomitant]
     Active Substance: ERYTHROPOIETIN
     Dosage: 4000 U/ML
  4. DAFALGAN FORTE [Concomitant]
     Dates: start: 20170727
  5. PACLITAXEL. [Suspect]
     Active Substance: PACLITAXEL
     Indication: OVARIAN CANCER
     Dosage: 175 MG/M2, EVERY 3 WEEKS
     Route: 042
     Dates: start: 20170518
  6. BEVACIZUMAB. [Suspect]
     Active Substance: BEVACIZUMAB
     Dosage: 700 MG, EVERY 3 WEEKS
     Route: 042
  7. PANTOMED [PANTOPRAZOLE SODIUM SESQUIHYDRATE] [Concomitant]
     Active Substance: PANTOPRAZOLE SODIUM
     Dates: start: 20170524, end: 20171121
  8. BEVACIZUMAB. [Suspect]
     Active Substance: BEVACIZUMAB
     Indication: OVARIAN CANCER
     Dosage: 780 MG, EVERY 3 WEEKS
     Route: 042
     Dates: start: 20170518
  9. ASAFLOW [Concomitant]
     Active Substance: ASPIRIN
     Dosage: 80 MG, UNK
  10. HYPERLIPEN [Concomitant]
     Dosage: 100 MG, UNK
  11. CARBOPLATIN. [Suspect]
     Active Substance: CARBOPLATIN
     Indication: OVARIAN CANCER
     Dosage: 6 AUC, EVERY 3 WEEKS
     Route: 042
     Dates: start: 20170518

REACTIONS (6)
  - Fatigue [Recovered/Resolved]
  - Erythema multiforme [Recovered/Resolved]
  - Periodontal disease [Recovered/Resolved]
  - Peripheral sensory neuropathy [Not Recovered/Not Resolved]
  - Ototoxicity [Not Recovered/Not Resolved]
  - Hypertension [Not Recovered/Not Resolved]

NARRATIVE: CASE EVENT DATE: 20170828
